FAERS Safety Report 21268045 (Version 2)
Quarter: 2022Q4

REPORT INFORMATION
  Report Type: Spontaneous
  Country: US (occurrence: None)
  Receive Date: 20220829
  Receipt Date: 20221010
  Transmission Date: 20230113
  Serious: No
  Sender: FDA-Public Use
  Company Number: 2022A278915

PATIENT
  Sex: Male
  Weight: 117.9 kg

DRUGS (2)
  1. FASENRA [Suspect]
     Active Substance: BENRALIZUMAB
     Indication: Asthma
     Route: 058
  2. SYMBICORT [Suspect]
     Active Substance: BUDESONIDE\FORMOTEROL FUMARATE DIHYDRATE
     Dosage: UNKNOWN
     Route: 055

REACTIONS (8)
  - Skin exfoliation [Unknown]
  - Skin ulcer [Unknown]
  - Dry skin [Unknown]
  - Rash [Unknown]
  - Skin fissures [Unknown]
  - Rash erythematous [Unknown]
  - Product dose omission issue [Unknown]
  - Drug ineffective [Unknown]
